FAERS Safety Report 22172701 (Version 1)
Quarter: 2023Q2

REPORT INFORMATION
  Report Type: Report from Study
  Country: IT (occurrence: IT)
  Receive Date: 20230404
  Receipt Date: 20230404
  Transmission Date: 20230721
  Serious: Yes (Other)
  Sender: FDA-Public Use
  Company Number: None

PATIENT
  Age: 87 Year
  Sex: Female

DRUGS (4)
  1. ISOPTIN [Suspect]
     Active Substance: VERAPAMIL HYDROCHLORIDE
     Indication: Product used for unknown indication
     Dosage: FREQUENCY OF ADMINISTRATION: DAILY
     Route: 048
     Dates: start: 20180101
  2. CARDURA [Suspect]
     Active Substance: DOXAZOSIN MESYLATE
     Indication: Product used for unknown indication
     Dosage: FREQUENCY OF ADMINISTRATION: DAILY
     Route: 048
     Dates: start: 20220101, end: 20221108
  3. LOSARTAN AHCL [Concomitant]
     Dosage: UNK
     Route: 065
  4. LASIX [Concomitant]
     Active Substance: FUROSEMIDE
     Dosage: UNK
     Route: 065

REACTIONS (1)
  - Loss of consciousness [Recovering/Resolving]

NARRATIVE: CASE EVENT DATE: 20221107
